FAERS Safety Report 25491249 (Version 1)
Quarter: 2025Q2

REPORT INFORMATION
  Report Type: Spontaneous
  Country: US (occurrence: US)
  Receive Date: 20250629
  Receipt Date: 20250629
  Transmission Date: 20250717
  Serious: No
  Sender: SANOFI AVENTIS
  Company Number: US-SA-2025SA181504

PATIENT
  Age: 87 Year
  Sex: Female

DRUGS (7)
  1. DUPIXENT [Suspect]
     Active Substance: DUPILUMAB
     Indication: Erythema
     Route: 058
  2. EVINACUMAB [Concomitant]
     Active Substance: EVINACUMAB
  3. EZETIMIBE [Concomitant]
     Active Substance: EZETIMIBE
  4. METOPROLOL [Concomitant]
     Active Substance: METOPROLOL
  5. OXYBUTYNIN [Concomitant]
     Active Substance: OXYBUTYNIN
  6. ACYCLOVIR [Concomitant]
     Active Substance: ACYCLOVIR
  7. OMEPRAZOLE [Concomitant]
     Active Substance: OMEPRAZOLE

REACTIONS (2)
  - Injection site pain [Recovered/Resolved]
  - Product use in unapproved indication [Unknown]
